FAERS Safety Report 4748457-0 (Version None)
Quarter: 2005Q3

REPORT INFORMATION
  Report Type: 
  Country: None (occurrence: None)
  Receive Date: 20050817
  Receipt Date: 20050504
  Transmission Date: 20060218
  Serious: Yes (Hospitalization)
  Sender: FDA-Public Use
  Company Number: PHEH2005US03170

PATIENT
  Age: 46 Year
  Sex: Female
  Weight: 108.8 kg

DRUGS (14)
  1. GLEEVEC [Suspect]
     Dosage: 800 MG, QD, ORAL; SEE IMAGE
     Route: 048
     Dates: start: 20020101, end: 20050301
  2. GLEEVEC [Suspect]
     Dosage: 800 MG, QD, ORAL; SEE IMAGE
     Route: 048
     Dates: start: 20011008
  3. GLEEVEC [Suspect]
     Dosage: 800 MG, QD, ORAL; SEE IMAGE
     Route: 048
     Dates: start: 20040101
  4. GLEEVEC [Suspect]
     Dosage: 400 MG, QD, ORAL; QD, ORAL
     Route: 048
     Dates: start: 20011008, end: 20020201
  5. GLEEVEC [Suspect]
     Dosage: 400 MG, QD, ORAL; QD, ORAL
     Route: 048
     Dates: start: 20020219
  6. HYDROCHLOROTHIAZIDE [Concomitant]
  7. LASIX [Concomitant]
  8. CORAL CALCIUM (CALCIUM, ERGOCALCIFEROL) [Concomitant]
  9. DICYCLOMINE HYDROCHLORIDE (DICYCLOVERINE HYDROCHLORIDE) [Concomitant]
  10. POTASSIUM [Concomitant]
  11. DIOVAN [Concomitant]
  12. ESTRADIOL [Concomitant]
  13. TRIAMTERENE [Concomitant]
  14. TYLENOL PM (DIPHENHYDRAMINE, PARACETAMOL) [Concomitant]

REACTIONS (21)
  - ABDOMINAL DISTENSION [None]
  - ABDOMINAL PAIN [None]
  - ANXIETY [None]
  - ASTHENIA [None]
  - BLOOD POTASSIUM DECREASED [None]
  - COLITIS [None]
  - CONSTIPATION [None]
  - DIZZINESS [None]
  - FATIGUE [None]
  - GASTROINTESTINAL HAEMORRHAGE [None]
  - HAEMATOCHEZIA [None]
  - HEADACHE [None]
  - HYPERTENSION [None]
  - INFLAMMATORY BOWEL DISEASE [None]
  - MALAISE [None]
  - MUSCLE SPASMS [None]
  - MUSCULOSKELETAL PAIN [None]
  - NAUSEA [None]
  - OESOPHAGITIS CHEMICAL [None]
  - TREMOR [None]
  - VOMITING [None]
